FAERS Safety Report 6003828-X (Version None)
Quarter: 2008Q4

REPORT INFORMATION
  Report Type: 
  Country: None (occurrence: None)
  Receive Date: 20081216
  Receipt Date: 20081209
  Transmission Date: 20090506
  Serious: Yes (Death)
  Sender: FDA-Public Use
  Company Number: US-ROCHE-592566

PATIENT
  Sex: Male

DRUGS (2)
  1. ENFUVIRTIDE [Suspect]
     Dosage: OTHER INDICATION: AIDS
     Route: 065
     Dates: start: 20080301
  2. ANTIRETROVIRALS [Suspect]
     Dosage: OTHER INDICATION: AIDS, DRUG: MULTIPLE ANTIRETROVIRALS
     Route: 065

REACTIONS (1)
  - HEPATIC CIRRHOSIS [None]
